FAERS Safety Report 12324254 (Version 1)
Quarter: 2016Q2

REPORT INFORMATION
  Report Type: Spontaneous
  Country: US (occurrence: US)
  Receive Date: 20160502
  Receipt Date: 20160502
  Transmission Date: 20160815
  Serious: No
  Sender: FDA-Public Use
  Company Number: US-ABBVIE-15P-163-1412058-00

PATIENT
  Sex: Male
  Weight: 115.77 kg

DRUGS (2)
  1. CABERGOLINE. [Concomitant]
     Active Substance: CABERGOLINE
     Indication: HYPERPROLACTINAEMIA
     Route: 065
  2. ANDROGEL [Suspect]
     Active Substance: TESTOSTERONE
     Indication: HYPOGONADISM
     Dosage: 4 PUMPS DAILY
     Route: 061
     Dates: start: 2011

REACTIONS (2)
  - Mood altered [Not Recovered/Not Resolved]
  - Drug ineffective [Unknown]

NARRATIVE: CASE EVENT DATE: 2014
